FAERS Safety Report 26118570 (Version 1)
Quarter: 2025Q4

REPORT INFORMATION
  Report Type: Spontaneous
  Country: CN (occurrence: CN)
  Receive Date: 20251203
  Receipt Date: 20251203
  Transmission Date: 20260117
  Serious: Yes (Hospitalization)
  Sender: BEIGENE
  Company Number: CN-BEONEMEDICINES-BGN-2025-021002

PATIENT
  Age: 61 Year
  Sex: Male
  Weight: 65 kg

DRUGS (1)
  1. BRUKINSA [Suspect]
     Active Substance: ZANUBRUTINIB
     Indication: Non-Hodgkin^s lymphoma
     Dosage: 160 MILLIGRAM, BID
     Dates: start: 20210929

REACTIONS (3)
  - Liver injury [Recovering/Resolving]
  - Hepatitis B reactivation [Recovering/Resolving]
  - Viral hepatitis carrier [Unknown]

NARRATIVE: CASE EVENT DATE: 20220101
